FAERS Safety Report 8454352-6 (Version None)
Quarter: 2012Q2

REPORT INFORMATION
  Report Type: 
  Country: None (occurrence: None)
  Receive Date: 20120621
  Receipt Date: 20120514
  Transmission Date: 20120825
  Serious: No
  Sender: FDA-Public Use
  Company Number: US-ALLERGAN-1206832US

PATIENT
  Age: 82 Year
  Sex: Female

DRUGS (2)
  1. COMBIGAN [Concomitant]
     Indication: GLAUCOMA
     Dosage: 2 GTT, BID
     Route: 047
  2. LUMIGAN [Suspect]
     Indication: GLAUCOMA
     Dosage: 2 GTT, QHS
     Route: 047
     Dates: start: 20120509, end: 20120511

REACTIONS (4)
  - ERYTHEMA [None]
  - VISION BLURRED [None]
  - SCLERAL HYPERAEMIA [None]
  - EYE PAIN [None]
